FAERS Safety Report 5834329-7 (Version None)
Quarter: 2008Q3

REPORT INFORMATION
  Report Type: 
  Country: None (occurrence: None)
  Receive Date: 20080731
  Receipt Date: 20080717
  Transmission Date: 20090109
  Serious: Yes (Other)
  Sender: FDA-Public Use
  Company Number: 236477J08USA

PATIENT
  Age: 62 Year
  Sex: Female

DRUGS (5)
  1. REBIF [Suspect]
     Indication: MULTIPLE SCLEROSIS
     Dates: start: 20071201
  2. FLEXERIL [Concomitant]
  3. MOBIC [Concomitant]
  4. MAXIDE (DYAZIDE) [Concomitant]
  5. EFFEXOR [Concomitant]

REACTIONS (4)
  - AUTOIMMUNE DISORDER [None]
  - INJECTION SITE RASH [None]
  - MASS [None]
  - RASH GENERALISED [None]
